FAERS Safety Report 21320582 (Version 1)
Quarter: 2022Q3

REPORT INFORMATION
  Report Type: Spontaneous
  Country: US (occurrence: US)
  Receive Date: 20220912
  Receipt Date: 20220912
  Transmission Date: 20221027
  Serious: Yes (Hospitalization)
  Sender: FDA-Public Use
  Company Number: US-Accord-27629

PATIENT
  Sex: Male
  Weight: 72.57 kg

DRUGS (1)
  1. CAPECITABINE [Suspect]
     Active Substance: CAPECITABINE
     Indication: Rectal cancer
     Dates: start: 20220722

REACTIONS (10)
  - Hypersensitivity [Unknown]
  - Inflammation [Unknown]
  - Rectal haemorrhage [Unknown]
  - Rectal discharge [Unknown]
  - Constipation [Unknown]
  - Hypotension [Not Recovered/Not Resolved]
  - Oedema [Unknown]
  - Asthma [Unknown]
  - Chills [Unknown]
  - Burning sensation [Unknown]
